FAERS Safety Report 12646500 (Version 2)
Quarter: 2016Q3

REPORT INFORMATION
  Report Type: Report from Study
  Country: MX (occurrence: MX)
  Receive Date: 20160812
  Receipt Date: 20160902
  Transmission Date: 20161109
  Serious: Yes (Disabling)
  Sender: FDA-Public Use
  Company Number: MX-ROCHE-1811039

PATIENT
  Age: 56 Year
  Sex: Male

DRUGS (3)
  1. ROACTEMRA [Suspect]
     Active Substance: TOCILIZUMAB
     Route: 042
     Dates: start: 201512, end: 201605
  2. METHOTREXATE. [Concomitant]
     Active Substance: METHOTREXATE
     Indication: RHEUMATOID ARTHRITIS
     Dosage: 3 TABLETS WEEKLY
     Route: 048
     Dates: start: 2000
  3. ROACTEMRA [Suspect]
     Active Substance: TOCILIZUMAB
     Indication: RHEUMATOID ARTHRITIS
     Route: 042
     Dates: start: 2012, end: 201511

REACTIONS (5)
  - Arthralgia [Not Recovered/Not Resolved]
  - Therapy non-responder [Unknown]
  - Arthritis [Not Recovered/Not Resolved]
  - Pharyngitis [Unknown]
  - Joint effusion [Recovering/Resolving]

NARRATIVE: CASE EVENT DATE: 20160822
